FAERS Safety Report 5676993-1 (Version None)
Quarter: 2008Q1

REPORT INFORMATION
  Report Type: 
  Country: None (occurrence: None)
  Receive Date: 20080324
  Receipt Date: 20080314
  Transmission Date: 20080703
  Serious: Yes (Hospitalization, Other)
  Sender: FDA-Public Use
  Company Number: CH-WYE-G01250908

PATIENT
  Age: 80 Year
  Sex: Female
  Weight: 63 kg

DRUGS (9)
  1. EFFEXOR [Suspect]
     Indication: MAJOR DEPRESSION
     Route: 048
     Dates: start: 20060101, end: 20071009
  2. EFFEXOR [Interacting]
     Route: 048
     Dates: start: 20071010
  3. CALCIMAGON [Concomitant]
     Route: 048
  4. TENORMIN [Concomitant]
     Route: 048
     Dates: start: 20071005
  5. DAFALGAN [Concomitant]
     Route: 048
     Dates: start: 20071010
  6. RISPERDAL CONSTA [Interacting]
     Indication: DELUSION
     Dosage: 25 MG EVERY 1 CYC
     Route: 030
     Dates: start: 20060201
  7. RISPERDAL CONSTA [Interacting]
     Dosage: 12.5 MG EVERY 1 CYC
     Route: 030
  8. RISPERDAL CONSTA [Interacting]
     Route: 030
  9. ASPIRIN [Concomitant]
     Route: 048

REACTIONS (12)
  - BRADYPHRENIA [None]
  - BRONCHOPNEUMONIA [None]
  - BUNDLE BRANCH BLOCK RIGHT [None]
  - CREATININE RENAL CLEARANCE DECREASED [None]
  - DRUG INTERACTION [None]
  - EXTRAPYRAMIDAL DISORDER [None]
  - FALL [None]
  - HEART RATE IRREGULAR [None]
  - SUPRAVENTRICULAR EXTRASYSTOLES [None]
  - SUPRAVENTRICULAR TACHYCARDIA [None]
  - VENTRICULAR EXTRASYSTOLES [None]
  - VERTIGO [None]
